FAERS Safety Report 8502672-9 (Version None)
Quarter: 2012Q3

REPORT INFORMATION
  Report Type: 
  Country: None (occurrence: None)
  Receive Date: 20120702
  Receipt Date: 20120619
  Transmission Date: 20120928
  Serious: Yes (Other)
  Sender: FDA-Public Use
  Company Number: FK201201740

PATIENT
  Age: 21 Year
  Sex: Female

DRUGS (2)
  1. CYTARABINE [Suspect]
     Indication: MULTIPLE MYELOMA
     Dosage: INTRATHECAL
     Route: 037
  2. METHOTREXATE [Suspect]
     Indication: MULTIPLE MYELOMA

REACTIONS (3)
  - APHASIA [None]
  - HEMIPARESIS [None]
  - LEUKOENCEPHALOPATHY [None]
